FAERS Safety Report 8051990-X (Version None)
Quarter: 2012Q1

REPORT INFORMATION
  Report Type: 
  Country: None (occurrence: None)
  Receive Date: 20120118
  Receipt Date: 20120106
  Transmission Date: 20120608
  Serious: Yes (Other)
  Sender: FDA-Public Use
  Company Number: JP-ELI_LILLY_AND_COMPANY-JP201201002755

PATIENT
  Sex: Female

DRUGS (8)
  1. FORTEO [Suspect]
     Dosage: UNK
     Route: 058
     Dates: start: 20111026, end: 20111026
  2. ASPARA-CA [Concomitant]
     Dosage: 2 DF, BID
     Route: 048
     Dates: start: 20110601
  3. PREDNISOLONE [Concomitant]
     Dosage: 8 MG, UNK
     Route: 048
     Dates: start: 20110824
  4. CLARITHROMYCIN [Concomitant]
     Dosage: 200 MG, UNK
     Route: 048
     Dates: start: 20101210
  5. ALFAROL [Concomitant]
     Dosage: 1 DF, QD
     Route: 048
     Dates: start: 20110601
  6. PROGRAF [Concomitant]
     Dosage: 1.5 MG, UNK
     Route: 048
     Dates: start: 20110126
  7. FORTEO [Suspect]
     Dosage: UNK
     Dates: start: 20111114, end: 20111115
  8. LANSOPRAZOLE [Concomitant]
     Dosage: 15 MG, UNK
     Route: 048
     Dates: start: 20091216

REACTIONS (2)
  - BACK PAIN [None]
  - NECK PAIN [None]
